FAERS Safety Report 7011696-2 (Version None)
Quarter: 2010Q3

REPORT INFORMATION
  Report Type: 
  Country: None (occurrence: None)
  Receive Date: 20100923
  Receipt Date: 20090430
  Transmission Date: 20110219
  Serious: No
  Sender: FDA-Public Use
  Company Number: US-WYE-H09178109

PATIENT
  Sex: Female
  Weight: 49.94 kg

DRUGS (4)
  1. PREMARIN [Suspect]
     Indication: HORMONE REPLACEMENT THERAPY
     Dosage: 0.625MG TABLET; UNKNOWN FREQUENCY
     Route: 048
  2. PREMARIN [Suspect]
     Route: 048
     Dates: start: 20090201
  3. ZOLPIDEM [Concomitant]
  4. COZAAR [Concomitant]

REACTIONS (1)
  - FEELING JITTERY [None]
